FAERS Safety Report 20024993 (Version 3)
Quarter: 2021Q4

REPORT INFORMATION
  Report Type: Spontaneous
  Country: PL (occurrence: PL)
  Receive Date: 20211102
  Receipt Date: 20211217
  Transmission Date: 20220304
  Serious: Yes (Death, Other)
  Sender: FDA-Public Use
  Company Number: PL-BAXTER-2021BAX022354

PATIENT
  Age: 5 Year
  Sex: Female

DRUGS (15)
  1. CISPLATIN [Suspect]
     Active Substance: CISPLATIN
     Indication: Disease recurrence
     Dosage: UNK, 2 CYCLES, SECOND-LINE CHEMOTHERAPY
     Route: 065
  2. CISPLATIN [Suspect]
     Active Substance: CISPLATIN
     Indication: Nephroblastoma
  3. CARBOPLATIN [Suspect]
     Active Substance: CARBOPLATIN
     Indication: Disease recurrence
     Dosage: UNK, 2 CYCLES, SECOND LINE CHEMOTHERAPY
     Route: 065
  4. CARBOPLATIN [Suspect]
     Active Substance: CARBOPLATIN
     Indication: Nephroblastoma
  5. ETOPOSIDE [Suspect]
     Active Substance: ETOPOSIDE
     Indication: Disease recurrence
     Dosage: UNK, SECOND-LINE CHEMOTHERAPY IN ICE REGIMEN
     Route: 065
  6. ETOPOSIDE [Suspect]
     Active Substance: ETOPOSIDE
     Indication: Nephroblastoma
     Dosage: UNK, 2 CYCLES, SECOND-LINE CHEMOTHERAPY IN CCE REGIMEN
     Route: 065
  7. CYCLOPHOSPHAMIDE [Suspect]
     Active Substance: CYCLOPHOSPHAMIDE
     Indication: Disease recurrence
     Dosage: UNK, .2 CYCLES, SECOND-LINE CHEMOTHERAPY
     Route: 065
  8. IFOSFAMIDE [Suspect]
     Active Substance: IFOSFAMIDE
     Indication: Disease recurrence
     Dosage: UNK, .2 CYCLES, SECOND-LINE CHEMOTHERAPY
     Route: 065
  9. CYCLOPHOSPHAMIDE [Suspect]
     Active Substance: CYCLOPHOSPHAMIDE
     Indication: Nephroblastoma
     Dosage: UNK, 2 CYCLES
  10. IFOSFAMIDE [Suspect]
     Active Substance: IFOSFAMIDE
     Indication: Nephroblastoma
     Dosage: UNK, 2 CYCLES
  11. VINCRISTINE [Concomitant]
     Active Substance: VINCRISTINE
     Indication: Nephroblastoma
     Dosage: UNK, SIOP 2001/2006 PROTOCOL
     Route: 065
  12. VINCRISTINE [Concomitant]
     Active Substance: VINCRISTINE
     Dosage: UNK, 27-WEEK POSTOPERATIVE CHEMOTHERAPY
     Route: 065
  13. DOXORUBICIN [Concomitant]
     Active Substance: DOXORUBICIN
     Indication: Nephroblastoma
     Dosage: UNK, 27-WEEK POSTOPERATIVE CHEMOTHERAPY
     Route: 065
  14. ACTINOMYCIN D [Concomitant]
     Active Substance: DACTINOMYCIN
     Indication: Nephroblastoma
     Dosage: UNK, 27-WEEK POSTOPERATIVE CHEMOTHERAPY
     Route: 065
  15. ACTINOMYCIN D [Concomitant]
     Active Substance: DACTINOMYCIN
     Dosage: UNK, SIOP 2001/2006 PROTOCOL
     Route: 065

REACTIONS (6)
  - Fanconi syndrome [Fatal]
  - Disease recurrence [Fatal]
  - Treatment failure [Fatal]
  - Condition aggravated [Unknown]
  - Bone marrow failure [Unknown]
  - Renal tubular acidosis [Unknown]
